FAERS Safety Report 17564139 (Version 1)
Quarter: 2020Q1

REPORT INFORMATION
  Report Type: Spontaneous
  Country: US (occurrence: US)
  Receive Date: 20200320
  Receipt Date: 20200320
  Transmission Date: 20200409
  Serious: No
  Sender: FDA-Public Use
  Company Number: US-VIFOR (INTERNATIONAL) INC.-VIT-2020-04591

PATIENT
  Age: 25 Year
  Sex: Female

DRUGS (5)
  1. MIRCERA [Suspect]
     Active Substance: METHOXY POLYETHYLENE GLYCOL-EPOETIN BETA
     Indication: PRODUCT USED FOR UNKNOWN INDICATION
  2. MIRCERA [Suspect]
     Active Substance: METHOXY POLYETHYLENE GLYCOL-EPOETIN BETA
     Dates: start: 20200206
  3. VITAMIN D [Concomitant]
     Active Substance: VITAMIN D NOS
     Route: 048
  4. VENOFER [Concomitant]
     Active Substance: IRON SUCROSE
  5. CALCITRIOL. [Concomitant]
     Active Substance: CALCITRIOL
     Route: 048

REACTIONS (3)
  - Drug hypersensitivity [Recovered/Resolved]
  - Flushing [Recovered/Resolved]
  - Erythema [Recovered/Resolved]

NARRATIVE: CASE EVENT DATE: 20200206
